FAERS Safety Report 8843761 (Version 1)
Quarter: 2012Q4

REPORT INFORMATION
  Report Type: 
  Country: GB (occurrence: GB)
  Receive Date: 20121016
  Receipt Date: 20121016
  Transmission Date: 20130627
  Serious: Yes (Other)
  Sender: FDA-Public Use
  Company Number: GB-009507513-1210GBR005368

PATIENT
  Age: 56 Year
  Sex: Male
  Weight: 59 kg

DRUGS (9)
  1. RIBAVIRIN [Suspect]
     Indication: HEPATITIS C
     Dosage: 600 mg, qd
     Route: 048
     Dates: start: 20110809
  2. RIBAVIRIN [Suspect]
     Dosage: 400 mg, qd
     Route: 048
     Dates: start: 20110809
  3. INTERFERON (UNSPECIFIED) [Suspect]
     Indication: HEPATITIS C
     Dosage: 180 Microgram, qw
     Route: 058
     Dates: start: 20110809
  4. TELAPREVIR [Suspect]
     Indication: HEPATITIS C
     Dosage: 750 mg, tid
     Route: 048
     Dates: start: 20110809
  5. METHADONE HYDROCHLORIDE [Concomitant]
     Indication: OPIATES
     Dosage: 85 mg/mL, qd
     Route: 048
  6. ZOPICLONE [Concomitant]
     Indication: INSOMNIA
     Dosage: 15 mg, qd
     Route: 048
     Dates: start: 20110805
  7. E45 CREAM [Concomitant]
     Indication: RASH
     Dosage: 1 DF, prn
     Route: 061
     Dates: start: 20110805
  8. PIRITON [Suspect]
     Indication: PRURITUS
     Dosage: 4.0 mg, prn
     Route: 048
     Dates: start: 20110905
  9. PIRITON [Suspect]
     Indication: RASH

REACTIONS (8)
  - Platelet count decreased [Unknown]
  - Haemoglobin decreased [Unknown]
  - Oral candidiasis [Unknown]
  - Lower respiratory tract infection [Unknown]
  - Tremor [Recovered/Resolved]
  - Insomnia [Recovering/Resolving]
  - Rash [Unknown]
  - Disorientation [Recovering/Resolving]
